FAERS Safety Report 22151552 (Version 1)
Quarter: 2023Q1

REPORT INFORMATION
  Report Type: Spontaneous
  Country: US (occurrence: None)
  Receive Date: 20230328
  Receipt Date: 20230328
  Transmission Date: 20230418
  Serious: No
  Sender: FDA-Public Use
  Company Number: None

PATIENT
  Age: 72 Year
  Sex: Female

DRUGS (2)
  1. BENLYSTA [Suspect]
     Active Substance: BELIMUMAB
     Indication: Systemic lupus erythematosus
     Dosage: FREQUENCY : WEEKLY;?
     Route: 058
     Dates: start: 202302
  2. BENLYSTA [Suspect]
     Active Substance: BELIMUMAB
     Indication: Senile osteoporosis

REACTIONS (3)
  - Illness [None]
  - Therapy interrupted [None]
  - Blood pressure abnormal [None]
